FAERS Safety Report 8120049-5 (Version None)
Quarter: 2011Q4

REPORT INFORMATION
  Report Type: 
  Country: None (occurrence: None)
  Receive Date: 20111227
  Receipt Date: 20111025
  Transmission Date: 20120403
  Serious: No
  Sender: FDA-Public Use
  Company Number: PHHY2011US44895

PATIENT
  Age: 46 Year
  Sex: Female

DRUGS (7)
  1. ZANAFLEX [Concomitant]
  2. DARVOCET [Concomitant]
  3. ADDERALL 10 [Concomitant]
  4. REBIF [Concomitant]
  5. FIORICET [Concomitant]
  6. GILENYA [Suspect]
     Indication: MULTIPLE SCLEROSIS
     Dosage: 0.5 MG, QD, ORAL
     Route: 048
     Dates: start: 20110520, end: 20110527
  7. NEURONTIN [Concomitant]

REACTIONS (14)
  - HEART RATE DECREASED [None]
  - DIARRHOEA [None]
  - ERUCTATION [None]
  - GASTROOESOPHAGEAL REFLUX DISEASE [None]
  - ASTHENIA [None]
  - ABDOMINAL DISTENSION [None]
  - MUSCULOSKELETAL PAIN [None]
  - DIZZINESS [None]
  - DYSPNOEA [None]
  - GASTROINTESTINAL PAIN [None]
  - ABDOMINAL PAIN [None]
  - DIPLOPIA [None]
  - FATIGUE [None]
  - BALANCE DISORDER [None]
